FAERS Safety Report 13536605 (Version 3)
Quarter: 2017Q2

REPORT INFORMATION
  Report Type: Spontaneous
  Country: US (occurrence: US)
  Receive Date: 20170511
  Receipt Date: 20170530
  Transmission Date: 20170830
  Serious: Yes (Hospitalization)
  Sender: FDA-Public Use
  Company Number: US-ALEXION-A201704942

PATIENT
  Sex: Male

DRUGS (2)
  1. SOLIRIS [Suspect]
     Active Substance: ECULIZUMAB
     Indication: HAEMOLYTIC URAEMIC SYNDROME
     Route: 042
  2. MENINGOCOCCAL POLYSACCHARIDE VACCINE A NOS [Suspect]
     Active Substance: MENINGOCOCCAL POLYSACCHARIDE VACCINE A\NEISSERIA MENINGITIDIS GROUP A CAPSULAR POLYSACCHARIDE ANTIGEN
     Indication: IMMUNISATION
     Dosage: UNK, SINGLE
     Route: 065
     Dates: start: 20170509, end: 20170509

REACTIONS (5)
  - Epigastric discomfort [Unknown]
  - Blood creatinine increased [Unknown]
  - Urine output increased [Unknown]
  - Hypertension [Unknown]
  - Pyrexia [Unknown]

NARRATIVE: CASE EVENT DATE: 20170503
